FAERS Safety Report 14209645 (Version 2)
Quarter: 2019Q1

REPORT INFORMATION
  Report Type: Spontaneous
  Country: US (occurrence: US)
  Receive Date: 20171121
  Receipt Date: 20190206
  Transmission Date: 20190417
  Serious: No
  Sender: FDA-Public Use
  Company Number: US-PFIZER INC-2017495416

PATIENT
  Age: 82 Year
  Sex: Female
  Weight: 77.11 kg

DRUGS (1)
  1. TIKOSYN [Suspect]
     Active Substance: DOFETILIDE
     Indication: ATRIAL FIBRILLATION
     Dosage: 0.25 MG, 2X/DAY (TAKES 1 CAPSULE EVERY 12 HOURS BY MOUTH, MORNING AND EVENING)
     Route: 048
     Dates: start: 201504

REACTIONS (9)
  - Respiratory symptom [Unknown]
  - Influenza [Unknown]
  - Ear pain [Unknown]
  - Lacrimation increased [Unknown]
  - Condition aggravated [Unknown]
  - Malaise [Unknown]
  - Oropharyngeal pain [Unknown]
  - Eye pain [Unknown]
  - Osteoarthritis [Unknown]

NARRATIVE: CASE EVENT DATE: 20190108
